FAERS Safety Report 9513958 (Version 1)
Quarter: 2013Q3

REPORT INFORMATION
  Report Type: Spontaneous
  Country: DE (occurrence: DE)
  Receive Date: 20130910
  Receipt Date: 20130910
  Transmission Date: 20140515
  Serious: Yes (Other)
  Sender: FDA-Public Use
  Company Number: DE-WATSON-2013-16351

PATIENT
  Sex: Female

DRUGS (1)
  1. LAMOTRIGINE (UNKNOWN) [Suspect]
     Indication: EPILEPSY
     Dosage: 400 MG, DAILY
     Route: 063

REACTIONS (3)
  - Failure to thrive [Recovering/Resolving]
  - Somnolence [Recovering/Resolving]
  - Exposure during breast feeding [Recovering/Resolving]
